FAERS Safety Report 8246731-7 (Version None)
Quarter: 2012Q1

REPORT INFORMATION
  Report Type: 
  Country: None (occurrence: None)
  Receive Date: 20120316
  Receipt Date: 20090519
  Transmission Date: 20120608
  Serious: Yes (Other)
  Sender: FDA-Public Use
  Company Number: PHEH2009US04362

PATIENT
  Age: 64 Year
  Sex: Female
  Weight: 68 kg

DRUGS (9)
  1. NORVASC [Concomitant]
  2. DIOVAN [Concomitant]
  3. ZANTAC [Concomitant]
  4. PREDNISONE TAB [Concomitant]
  5. PLAVIX [Concomitant]
  6. IMDUR [Concomitant]
  7. OMACOR /01403701/ (OMEGA-3 MARINE TRIGLYCERIDES) [Concomitant]
  8. NEXIUM [Concomitant]
  9. TEKTURNA [Suspect]
     Dosage: 300 MG,
     Dates: start: 20090423

REACTIONS (5)
  - DYSPHAGIA [None]
  - ODYNOPHAGIA [None]
  - LIP SWELLING [None]
  - SWOLLEN TONGUE [None]
  - ANGIOEDEMA [None]
